FAERS Safety Report 17822577 (Version 1)
Quarter: 2020Q2

REPORT INFORMATION
  Report Type: Report from Study
  Country: IT (occurrence: IT)
  Receive Date: 20200526
  Receipt Date: 20200526
  Transmission Date: 20200714
  Serious: Yes (Other)
  Sender: FDA-Public Use
  Company Number: IT-SUN PHARMACEUTICAL INDUSTRIES LTD-2020RR-248280

PATIENT
  Age: 64 Year

DRUGS (3)
  1. BORTEZOMIB. [Suspect]
     Active Substance: BORTEZOMIB
     Indication: LIGHT CHAIN DISEASE
     Dosage: UNK
     Route: 065
  2. DEXAMETHASONE. [Suspect]
     Active Substance: DEXAMETHASONE
     Indication: LIGHT CHAIN DISEASE
     Dosage: UNK
     Route: 065
  3. CYCLOPHOSPHAMIDE. [Suspect]
     Active Substance: CYCLOPHOSPHAMIDE
     Indication: LIGHT CHAIN DISEASE
     Dosage: UNK
     Route: 065

REACTIONS (1)
  - Disease progression [Unknown]
